FAERS Safety Report 8572542-9 (Version None)
Quarter: 2012Q3

REPORT INFORMATION
  Report Type: 
  Country: None (occurrence: None)
  Receive Date: 20120806
  Receipt Date: 20120730
  Transmission Date: 20120928
  Serious: Yes (Other)
  Sender: FDA-Public Use
  Company Number: TN-ROCHE-1094324

PATIENT
  Sex: Female

DRUGS (2)
  1. MABTHERA [Suspect]
     Indication: RHEUMATOID ARTHRITIS
     Route: 042
     Dates: start: 20120712
  2. SINTROM [Concomitant]
     Indication: THROMBOSIS
     Dates: start: 20060101

REACTIONS (2)
  - SENSATION OF HEAVINESS [None]
  - VOMITING [None]
